FAERS Safety Report 10207038 (Version 1)
Quarter: 2014Q2

REPORT INFORMATION
  Report Type: Report from Study
  Country: JP (occurrence: JP)
  Receive Date: 20140530
  Receipt Date: 20140530
  Transmission Date: 20141212
  Serious: Yes (Death)
  Sender: FDA-Public Use
  Company Number: JP-SA-2014SA070482

PATIENT
  Sex: Male
  Weight: 71.6 kg

DRUGS (10)
  1. THYMOGLOBULINE [Suspect]
     Indication: BONE MARROW CONDITIONING REGIMEN
     Route: 042
     Dates: start: 20101129, end: 20101130
  2. FLUDARA [Concomitant]
     Indication: APLASTIC ANAEMIA
     Dates: start: 20101129, end: 20101204
  3. BUSULFEX [Concomitant]
     Indication: APLASTIC ANAEMIA
     Dates: start: 20101201, end: 20101202
  4. PROGRAF [Concomitant]
     Indication: PROPHYLAXIS AGAINST GRAFT VERSUS HOST DISEASE
     Dates: start: 20101205, end: 20110112
  5. SOL-MELCORT [Concomitant]
     Indication: PROPHYLAXIS AGAINST GRAFT VERSUS HOST DISEASE
     Dates: start: 20101207, end: 20110222
  6. BAKTAR [Concomitant]
     Indication: INFECTION PROPHYLAXIS
     Dates: start: 20101201, end: 20110524
  7. ITRIZOLE [Concomitant]
     Indication: INFECTION PROPHYLAXIS
     Dates: start: 20110302, end: 20110524
  8. FUNGUARD [Concomitant]
     Indication: INFECTION PROPHYLAXIS
     Dates: start: 20110131, end: 20110218
  9. MAXIPIME [Concomitant]
     Indication: INFECTION PROPHYLAXIS
     Dates: start: 20101204, end: 20110101
  10. ACICLOVIR [Concomitant]
     Indication: INFECTION PROPHYLAXIS
     Dates: start: 20101211, end: 20110125

REACTIONS (1)
  - Cardiogenic shock [Fatal]
